FAERS Safety Report 15434328 (Version 2)
Quarter: 2018Q4

REPORT INFORMATION
  Report Type: Spontaneous
  Country: IL (occurrence: IL)
  Receive Date: 20180927
  Receipt Date: 20181004
  Transmission Date: 20190204
  Serious: Yes (Other)
  Sender: FDA-Public Use
  Company Number: IL-TEVA-2018-IL-958681

PATIENT
  Age: 96 Year
  Sex: Female

DRUGS (1)
  1. QUETIAPINE. [Suspect]
     Active Substance: QUETIAPINE
     Route: 065

REACTIONS (4)
  - Violence-related symptom [Recovered/Resolved]
  - Product substitution issue [Unknown]
  - Abnormal behaviour [Recovered/Resolved]
  - Aggression [Recovered/Resolved]
